FAERS Safety Report 11977715 (Version 4)
Quarter: 2016Q1

REPORT INFORMATION
  Report Type: Spontaneous
  Country: US (occurrence: US)
  Receive Date: 20160129
  Receipt Date: 20160225
  Transmission Date: 20160526
  Serious: Yes (Hospitalization)
  Sender: FDA-Public Use
  Company Number: US-LUNDBECK-DKLU2009234

PATIENT
  Age: 78 Year
  Sex: Male

DRUGS (4)
  1. NORTHERA [Suspect]
     Active Substance: DROXIDOPA
     Indication: ORTHOSTATIC HYPOTENSION
     Route: 065
     Dates: end: 201601
  2. NORTHERA [Suspect]
     Active Substance: DROXIDOPA
     Route: 065
     Dates: start: 20160128
  3. NORTHERA [Suspect]
     Active Substance: DROXIDOPA
     Indication: PARKINSON^S DISEASE
     Route: 065
     Dates: start: 20160119
  4. NORTHERA [Suspect]
     Active Substance: DROXIDOPA
     Route: 065

REACTIONS (7)
  - Palpitations [Unknown]
  - Nausea [Unknown]
  - Asthenia [Unknown]
  - Fatigue [Unknown]
  - Lethargy [Unknown]
  - Oxygen saturation decreased [Unknown]
  - Blood pressure increased [Unknown]

NARRATIVE: CASE EVENT DATE: 20160122
